FAERS Safety Report 18150887 (Version 1)
Quarter: 2020Q3

REPORT INFORMATION
  Report Type: Other
  Country: DK (occurrence: DK)
  Receive Date: 20200814
  Receipt Date: 20200814
  Transmission Date: 20201103
  Serious: Yes (Other)
  Sender: FDA-Public Use
  Company Number: DK-ROCHE-1173851

PATIENT
  Sex: Female

DRUGS (1)
  1. BEVACIZUMAB. [Suspect]
     Active Substance: BEVACIZUMAB
     Indication: OVARIAN CANCER
     Route: 065

REACTIONS (6)
  - Cerebral artery embolism [Unknown]
  - Gastrointestinal perforation [Unknown]
  - Embolism venous [Unknown]
  - Female genital tract fistula [Unknown]
  - Hypertension [Unknown]
  - Transient ischaemic attack [Unknown]
